FAERS Safety Report 24648795 (Version 1)
Quarter: 2024Q4

REPORT INFORMATION
  Report Type: Spontaneous
  Country: FR (occurrence: FR)
  Receive Date: 20241121
  Receipt Date: 20241121
  Transmission Date: 20250115
  Serious: Yes (Other)
  Sender: FRESENIUS KABI
  Company Number: None

PATIENT
  Age: 62 Year
  Sex: Female

DRUGS (6)
  1. PACLITAXEL [Suspect]
     Active Substance: PACLITAXEL
     Indication: Endometrial cancer
     Dosage: C1D1
     Route: 042
     Dates: start: 20240805, end: 20240805
  2. CARBOPLATIN [Concomitant]
     Active Substance: CARBOPLATIN
     Indication: Endometrial cancer
     Dosage: C1J1?ROA: INTRAVENOUS
     Dates: start: 20240805, end: 20240805
  3. LOVENOX 6000 UI anti-Xa/0.6 ml, solution for injection (S.C.) in pre-f [Concomitant]
     Indication: Uterine artery embolisation
  4. SOLUPRED 20 mg, orodispersible tablet [Concomitant]
     Indication: Antiemetic supportive care
     Route: 048
     Dates: start: 20240806, end: 20240806
  5. SOLUPRED 20 mg, orodispersible tablet [Concomitant]
     Route: 048
     Dates: start: 20240807, end: 20240807
  6. PRIMPERAN [Concomitant]
     Active Substance: METOCLOPRAMIDE HYDROCHLORIDE
     Indication: Antiemetic supportive care
     Dosage: 3X/DAY FOR 2 TO 3 DAYS
     Route: 048
     Dates: start: 20240806, end: 20240808

REACTIONS (1)
  - Anaphylactic reaction [Recovered/Resolved]

NARRATIVE: CASE EVENT DATE: 20240805
